FAERS Safety Report 9265212 (Version 16)
Quarter: 2017Q2

REPORT INFORMATION
  Report Type: Report from Study
  Country: CA (occurrence: CA)
  Receive Date: 20130501
  Receipt Date: 20170502
  Transmission Date: 20170830
  Serious: Yes (Hospitalization, Other)
  Sender: FDA-Public Use
  Company Number: CA-ROCHE-1201153

PATIENT
  Age: 51 Year
  Sex: Female
  Weight: 113.4 kg

DRUGS (20)
  1. ACETAMINOPHEN. [Concomitant]
     Active Substance: ACETAMINOPHEN
     Indication: PREMEDICATION
     Route: 048
     Dates: start: 20120528
  2. METHYLPREDNISOLONE. [Concomitant]
     Active Substance: METHYLPREDNISOLONE
     Indication: PREMEDICATION
     Route: 042
     Dates: start: 20120528
  3. CARBOCAL D [Concomitant]
     Active Substance: CALCIUM\VITAMIN D
  4. GRAVOL [Concomitant]
     Active Substance: DIMENHYDRINATE
     Route: 065
  5. CELEBREX [Concomitant]
     Active Substance: CELECOXIB
     Route: 065
  6. NOVO-VENLAFAXINE XR [Concomitant]
  7. ELAVIL [Concomitant]
     Active Substance: AMITRIPTYLINE HYDROCHLORIDE
  8. RITUXAN [Suspect]
     Active Substance: RITUXIMAB
     Indication: RHEUMATOID ARTHRITIS
     Dosage: ON 28/DEC/2015, RECEIVED LAST INFUSION
     Route: 042
     Dates: start: 20120528, end: 20160929
  9. ACTONEL [Concomitant]
     Active Substance: RISEDRONATE SODIUM
  10. TYLENOL ARTHRITIS PAIN [Concomitant]
     Active Substance: ACETAMINOPHEN
  11. LYRICA [Concomitant]
     Active Substance: PREGABALIN
  12. DIPHENHYDRAMINE HCL [Concomitant]
     Active Substance: DIPHENHYDRAMINE HYDROCHLORIDE
     Indication: PREMEDICATION
     Route: 048
     Dates: start: 20120528
  13. METHOTREXATE. [Concomitant]
     Active Substance: METHOTREXATE
  14. TYLENOL [Concomitant]
     Active Substance: ACETAMINOPHEN
  15. OMEPRAZOLE. [Concomitant]
     Active Substance: OMEPRAZOLE
  16. SYNTHROID [Concomitant]
     Active Substance: LEVOTHYROXINE SODIUM
  17. PREDNISONE. [Concomitant]
     Active Substance: PREDNISONE
  18. RITUXAN [Suspect]
     Active Substance: RITUXIMAB
     Route: 042
     Dates: start: 20130408
  19. EURO-FOLIC [Concomitant]
  20. LEUCOVORIN CALCIUM. [Concomitant]
     Active Substance: LEUCOVORIN CALCIUM

REACTIONS (16)
  - Weight decreased [Unknown]
  - Tension [Recovered/Resolved]
  - Insomnia [Recovered/Resolved]
  - Bronchitis [Recovered/Resolved]
  - Thrombosis [Unknown]
  - Palpitations [Unknown]
  - Fatigue [Recovered/Resolved]
  - Heart rate increased [Unknown]
  - Throat tightness [Recovering/Resolving]
  - Bronchitis [Unknown]
  - Electrocardiogram abnormal [Unknown]
  - Urinary tract infection [Recovered/Resolved]
  - Headache [Recovered/Resolved]
  - Arthralgia [Not Recovered/Not Resolved]
  - Pericarditis [Not Recovered/Not Resolved]
  - Drug hypersensitivity [Unknown]

NARRATIVE: CASE EVENT DATE: 2013
